FAERS Safety Report 9349009 (Version 1)
Quarter: 2013Q2

REPORT INFORMATION
  Report Type: Spontaneous
  Country: US (occurrence: US)
  Receive Date: 20130614
  Receipt Date: 20130614
  Transmission Date: 20140414
  Serious: No
  Sender: FDA-Public Use
  Company Number: US-TEVA-412152USA

PATIENT
  Sex: Female

DRUGS (1)
  1. NUVIGIL [Suspect]
     Route: 048
     Dates: start: 20130611

REACTIONS (2)
  - Insomnia [Recovered/Resolved]
  - Off label use [Not Recovered/Not Resolved]
